FAERS Safety Report 25829797 (Version 2)
Quarter: 2025Q4

REPORT INFORMATION
  Report Type: Spontaneous
  Country: EU (occurrence: EU)
  Receive Date: 20250922
  Receipt Date: 20251006
  Transmission Date: 20260117
  Serious: Yes (Other)
  Sender: AUROBINDO
  Company Number: EU-EVENT-004153

PATIENT
  Age: 78 Year
  Sex: Male

DRUGS (3)
  1. LENALIDOMIDE [Suspect]
     Active Substance: LENALIDOMIDE
     Indication: Diffuse large B-cell lymphoma
     Dosage: UNK
     Route: 065
     Dates: start: 202307
  2. TAFASITAMAB [Suspect]
     Active Substance: TAFASITAMAB
     Indication: Diffuse large B-cell lymphoma
     Dosage: UNK
     Route: 065
     Dates: start: 202307
  3. TAFASITAMAB [Suspect]
     Active Substance: TAFASITAMAB
     Dosage: UNK (MONOTHERAPY)
     Route: 065
     Dates: start: 202407

REACTIONS (4)
  - Squamous cell carcinoma of skin [Unknown]
  - Prostate cancer [Unknown]
  - Leukopenia [Unknown]
  - Anaemia [Unknown]

NARRATIVE: CASE EVENT DATE: 20240501
